FAERS Safety Report 16509795 (Version 1)
Quarter: 2019Q3

REPORT INFORMATION
  Report Type: Spontaneous
  Country: US (occurrence: US)
  Receive Date: 20190701
  Receipt Date: 20190701
  Transmission Date: 20191004
  Serious: Yes (Other)
  Sender: FDA-Public Use
  Company Number: None

PATIENT
  Age: 52 Year
  Sex: Female

DRUGS (21)
  1. FLUCONAZOLE. [Concomitant]
     Active Substance: FLUCONAZOLE
  2. PROMETHAZINE [Concomitant]
     Active Substance: PROMETHAZINE HYDROCHLORIDE
  3. CHLORHEX GLU [Concomitant]
  4. BROM/PSE/DM [Concomitant]
  5. DOXYCYCL HYC [Concomitant]
  6. IRBESAR/HCTZ [Concomitant]
  7. HUMIRA [Suspect]
     Active Substance: ADALIMUMAB
     Indication: RHEUMATOID ARTHRITIS
     Dosage: ?          OTHER FREQUENCY:EVERY 2 WEEKS;?
     Route: 058
     Dates: start: 20180601
  8. HYDROCO/APAP [Concomitant]
     Active Substance: ACETAMINOPHEN\HYDROCODONE
  9. CELECOXIB. [Concomitant]
     Active Substance: CELECOXIB
  10. METHYLPRED [Concomitant]
     Active Substance: METHYLPREDNISOLONE
  11. DILTIAZEM. [Concomitant]
     Active Substance: DILTIAZEM
  12. HYDROQUINONE. [Concomitant]
     Active Substance: HYDROQUINONE
  13. AMOX/ K CLAV [Concomitant]
  14. FOLIC ACID. [Concomitant]
     Active Substance: FOLIC ACID
  15. AMOXICILLIN. [Concomitant]
     Active Substance: AMOXICILLIN
  16. AZITHROMYCIN ANHYDROUS. [Concomitant]
     Active Substance: AZITHROMYCIN ANHYDROUS
  17. DEXAMETHASONE. [Concomitant]
     Active Substance: DEXAMETHASONE
  18. TRAMADOL. [Concomitant]
     Active Substance: TRAMADOL
  19. PANTOPRAZOLE [Concomitant]
     Active Substance: PANTOPRAZOLE
  20. MINOCYCLINE [Concomitant]
     Active Substance: MINOCYCLINE HYDROCHLORIDE
  21. CELECOXIB. [Concomitant]
     Active Substance: CELECOXIB

REACTIONS (2)
  - Surgery [None]
  - Therapy cessation [None]
